FAERS Safety Report 19281355 (Version 1)
Quarter: 2021Q2

REPORT INFORMATION
  Report Type: Spontaneous
  Country: US (occurrence: US)
  Receive Date: 20210520
  Receipt Date: 20210520
  Transmission Date: 20210717
  Serious: Yes (Disabling, Other)
  Sender: FDA-Public Use
  Company Number: US-GLAXOSMITHKLINE-US2021AMR104219

PATIENT
  Age: 66 Year
  Sex: Female
  Weight: 108.86 kg

DRUGS (6)
  1. ADVAIR HFA [Suspect]
     Active Substance: FLUTICASONE PROPIONATE\SALMETEROL XINAFOATE
     Indication: PRODUCT USED FOR UNKNOWN INDICATION
     Dosage: UNK
  2. INFLUENZA SHOT [Suspect]
     Active Substance: INFLUENZA VIRUS VACCINE
     Indication: ANTIVIRAL PROPHYLAXIS
     Dosage: UNK
  3. PFIZER?BIONTECH COVID?19 VACCINE [Suspect]
     Active Substance: TOZINAMERAN
     Indication: COVID-19 PROPHYLAXIS
     Dosage: UNK
     Dates: start: 20210204
  4. SYNTHROID [Concomitant]
     Active Substance: LEVOTHYROXINE SODIUM
     Indication: PRODUCT USED FOR UNKNOWN INDICATION
     Dosage: 112 MCG/MG, QD
  5. PFIZER?BIONTECH COVID?19 VACCINE [Suspect]
     Active Substance: TOZINAMERAN
     Dosage: UNK
     Dates: start: 20210225
  6. TRELEGY ELLIPTA [Suspect]
     Active Substance: FLUTICASONE FUROATE\UMECLIDINIUM BROMIDE\VILANTEROL TRIFENATATE
     Indication: PRODUCT USED FOR UNKNOWN INDICATION
     Dosage: UNK

REACTIONS (26)
  - Adverse drug reaction [Unknown]
  - Ill-defined disorder [Unknown]
  - Seasonal allergy [Unknown]
  - Dyspnoea [Unknown]
  - COVID-19 [Unknown]
  - Tremor [Unknown]
  - Cardiac disorder [Unknown]
  - Headache [Recovered/Resolved]
  - Cerebral disorder [Unknown]
  - Pyrexia [Unknown]
  - Visual impairment [Recovered/Resolved]
  - Thyroid cancer [Unknown]
  - Crush injury [Unknown]
  - Electrocardiogram QRS complex abnormal [Unknown]
  - Nervous system disorder [Unknown]
  - Thrombosis [Unknown]
  - Immune system disorder [Unknown]
  - Weight increased [Unknown]
  - Sneezing [Unknown]
  - Alopecia [Unknown]
  - Sinus disorder [Unknown]
  - Nasal congestion [Unknown]
  - Gait disturbance [Recovered/Resolved]
  - Dysphonia [Not Recovered/Not Resolved]
  - Hypersomnia [Recovered/Resolved]
  - Atrophy [Unknown]

NARRATIVE: CASE EVENT DATE: 2020
